FAERS Safety Report 10251983 (Version 1)
Quarter: 2014Q2

REPORT INFORMATION
  Report Type: Spontaneous
  Country: GB (occurrence: GB)
  Receive Date: 20140623
  Receipt Date: 20140623
  Transmission Date: 20141212
  Serious: Yes (Other)
  Sender: FDA-Public Use
  Company Number: GB-ROCHE-1421942

PATIENT
  Age: 19 Year
  Sex: Female
  Weight: 52.9 kg

DRUGS (4)
  1. NAPROXEN [Suspect]
     Indication: PRODUCT USED FOR UNKNOWN INDICATION
     Dosage: 245
     Route: 065
     Dates: start: 20140606
  2. CERELLE [Concomitant]
     Route: 065
     Dates: start: 20140501
  3. CHLORPHENAMINE [Concomitant]
     Route: 065
     Dates: start: 20140312, end: 20140319
  4. DEPO-PROVERA [Concomitant]
     Route: 065
     Dates: start: 20140429, end: 20140501

REACTIONS (2)
  - Local swelling [Recovered/Resolved]
  - Dyspnoea [Recovered/Resolved]
